FAERS Safety Report 4515170-4 (Version None)
Quarter: 2004Q4

REPORT INFORMATION
  Report Type: 
  Country: None (occurrence: None)
  Receive Date: 20041126
  Receipt Date: 20041115
  Transmission Date: 20050328
  Serious: Yes (Other)
  Sender: FDA-Public Use
  Company Number: 2004094777

PATIENT
  Age: 72 Year
  Sex: Male

DRUGS (1)
  1. GENOTROPIN [Suspect]
     Indication: HYPOPITUITARISM
     Dosage: 0.2 MG, SUBCUTANEOUS
     Route: 058
     Dates: start: 20030121

REACTIONS (2)
  - NON-SECRETORY ADENOMA OF PITUITARY [None]
  - PITUITARY TUMOUR RECURRENT [None]
